FAERS Safety Report 10577588 (Version 1)
Quarter: 2014Q4

REPORT INFORMATION
  Report Type: Spontaneous
  Country: IT (occurrence: IT)
  Receive Date: 20141111
  Receipt Date: 20141111
  Transmission Date: 20150529
  Serious: Yes (Hospitalization)
  Sender: FDA-Public Use
  Company Number: IT-ACTAVIS-2014-23973

PATIENT
  Age: 24 Year
  Sex: Male

DRUGS (3)
  1. DAPAROX                            /00830802/ [Suspect]
     Active Substance: PAROXETINE HYDROCHLORIDE
     Indication: SUICIDE ATTEMPT
     Dosage: 840 MG, TOTAL
     Route: 048
     Dates: start: 20141006, end: 20141006
  2. QUETIAPINE (UNKNOWN) [Suspect]
     Active Substance: QUETIAPINE
     Indication: SUICIDE ATTEMPT
     Dosage: 1250 MG, TOTAL
     Route: 048
     Dates: start: 20141006, end: 20141006
  3. ALPRAZOLAM (UNKNOWN) [Suspect]
     Active Substance: ALPRAZOLAM
     Indication: SUICIDE ATTEMPT
     Dosage: 15 MG, TOTAL
     Route: 048
     Dates: start: 20141006, end: 20141006

REACTIONS (4)
  - Suicide attempt [Not Recovered/Not Resolved]
  - Tachycardia [Not Recovered/Not Resolved]
  - Sopor [Not Recovered/Not Resolved]
  - Drug abuse [Not Recovered/Not Resolved]

NARRATIVE: CASE EVENT DATE: 20141006
